FAERS Safety Report 4860843-7 (Version None)
Quarter: 2005Q4

REPORT INFORMATION
  Report Type: 
  Country: None (occurrence: None)
  Receive Date: 20051220
  Receipt Date: 20051108
  Transmission Date: 20060501
  Serious: Yes (Death, Other)
  Sender: FDA-Public Use
  Company Number: JP-BRACCO-BRO-009381

PATIENT
  Sex: Female
  Weight: 46 kg

DRUGS (6)
  1. IOPAMIRON [Suspect]
     Indication: COLORECTAL CANCER
     Dosage: 3.0 ML/SEC
     Route: 042
     Dates: start: 20051102, end: 20051102
  2. IOPAMIRON [Suspect]
     Indication: COMPUTERISED TOMOGRAM
     Dosage: 3.0 ML/SEC
     Route: 042
     Dates: start: 20051102, end: 20051102
  3. TOWARAT L [Concomitant]
     Route: 050
     Dates: end: 20051102
  4. DIOVAN                             /01319601/ [Concomitant]
     Route: 050
     Dates: end: 20051102
  5. FAMOTIDINE [Concomitant]
     Route: 050
     Dates: end: 20051102
  6. FUROSEMIDE [Concomitant]
     Route: 050
     Dates: end: 20051102

REACTIONS (8)
  - BLOOD PRESSURE DECREASED [None]
  - DEPRESSED LEVEL OF CONSCIOUSNESS [None]
  - HAEMORRHAGE [None]
  - NAUSEA [None]
  - PERICARDIAL EFFUSION [None]
  - RESPIRATORY RATE DECREASED [None]
  - SHOCK [None]
  - VOMITING [None]
